FAERS Safety Report 5453887-8 (Version None)
Quarter: 2007Q3

REPORT INFORMATION
  Report Type: 
  Country: None (occurrence: None)
  Receive Date: 20070917
  Receipt Date: 20070914
  Transmission Date: 20080115
  Serious: Yes (Other)
  Sender: FDA-Public Use
  Company Number: B0487069A

PATIENT
  Age: 87 Year
  Sex: Female

DRUGS (6)
  1. ARIXTRA [Suspect]
     Indication: THROMBOSIS PROPHYLAXIS
     Dosage: 2.5MG PER DAY
     Route: 058
     Dates: start: 20070904, end: 20070908
  2. LOXONIN [Concomitant]
     Dosage: 60MG THREE TIMES PER DAY
     Route: 048
  3. UNKNOWN NAME [Concomitant]
     Route: 048
  4. ASPIRIN [Concomitant]
     Dosage: 100MG PER DAY
     Route: 048
  5. SELBEX [Concomitant]
     Dosage: 50MG THREE TIMES PER DAY
     Route: 048
  6. MAGMITT [Concomitant]
     Dosage: 990MG PER DAY
     Route: 048

REACTIONS (1)
  - GASTROINTESTINAL HAEMORRHAGE [None]
